FAERS Safety Report 13748431 (Version 3)
Quarter: 2017Q3

REPORT INFORMATION
  Report Type: Spontaneous
  Country: US (occurrence: US)
  Receive Date: 20170713
  Receipt Date: 20170802
  Transmission Date: 20171127
  Serious: Yes (Other)
  Sender: FDA-Public Use
  Company Number: US-009507513-1707USA001561

PATIENT
  Age: 16 Year
  Sex: Male

DRUGS (11)
  1. METHYLPREDNISOLONE. [Concomitant]
     Active Substance: METHYLPREDNISOLONE
     Dosage: 40 MG, Q6H
     Route: 042
  2. AMINOPHYLLINE. [Concomitant]
     Active Substance: AMINOPHYLLINE
     Dosage: 0.5 MG/KG/H, INFUSION
  3. EPINEPHRINE. [Concomitant]
     Active Substance: EPINEPHRINE
     Dosage: 0.27 MG/KG/MIN
  4. PROVENTIL [Suspect]
     Active Substance: ALBUTEROL
     Dosage: CONTINUOUS INHALED, 10 MG/H
     Route: 055
  5. MAGNESIUM (UNSPECIFIED) [Concomitant]
     Active Substance: MAGNESIUM
     Dosage: 25 MG/KG/H
  6. AMINOPHYLLINE. [Concomitant]
     Active Substance: AMINOPHYLLINE
     Dosage: 6 MG/KG BOLUS
  7. KETAMINE [Concomitant]
     Active Substance: KETAMINE
     Dosage: 2 MG/KG/H
  8. SEVOFLURANE. [Concomitant]
     Active Substance: SEVOFLURANE
     Dosage: WITH A FRESH GAS FLOW RATE OF 2 L/MIN
     Route: 055
  9. MAGNESIUM (UNSPECIFIED) [Concomitant]
     Active Substance: MAGNESIUM
     Dosage: 15 MG/KG/H
  10. MIDAZOLAM [Concomitant]
     Active Substance: MIDAZOLAM HYDROCHLORIDE
     Dosage: UNK
  11. EPINEPHRINE. [Concomitant]
     Active Substance: EPINEPHRINE
     Dosage: 0.2 MG/KG/MIN

REACTIONS (2)
  - Hypercapnia [Recovered/Resolved]
  - Device failure [Recovered/Resolved]
